FAERS Safety Report 5090717-0 (Version None)
Quarter: 2006Q3

REPORT INFORMATION
  Report Type: 
  Country: None (occurrence: None)
  Receive Date: 20060823
  Receipt Date: 20060810
  Transmission Date: 20061208
  Serious: Yes (Other)
  Sender: FDA-Public Use
  Company Number: 14524

PATIENT
  Age: 43 Year
  Sex: Female
  Weight: 102 kg

DRUGS (9)
  1. MORPHINE [Suspect]
     Indication: ANALGESIC EFFECT
  2. MORPHINE [Suspect]
     Indication: ANALGESIC EFFECT
  3. MORPHINE [Suspect]
     Indication: ANALGESIC EFFECT
     Dosage: 2 MG OTH IV
     Route: 042
  4. MORPHINE [Suspect]
     Indication: ANALGESIC EFFECT
     Dosage: 5 MG       ONCE         IV
     Route: 042
  5. MORPHINE [Suspect]
     Indication: ANALGESIC EFFECT
     Dosage: 5 MG  ONCE  IV
     Route: 042
  6. OXYCOCET [Concomitant]
  7. TYLENOL W/ CODEINE NO. 3 [Concomitant]
  8. BUPIVACAINE/FENTANYL [Concomitant]
  9. DEMEROL [Concomitant]

REACTIONS (11)
  - APNOEIC ATTACK [None]
  - BREAKTHROUGH PAIN [None]
  - CYANOSIS [None]
  - DRUG ADMINISTRATION ERROR [None]
  - FEELING ABNORMAL [None]
  - INCORRECT DOSE ADMINISTERED [None]
  - MEDICAL DEVICE COMPLICATION [None]
  - MEDICATION ERROR [None]
  - OVERDOSE [None]
  - RESPIRATORY ARREST [None]
  - SOMNOLENCE [None]
